FAERS Safety Report 11617096 (Version 1)
Quarter: 2015Q4

REPORT INFORMATION
  Report Type: Spontaneous
  Country: US (occurrence: US)
  Receive Date: 20151009
  Receipt Date: 20151009
  Transmission Date: 20160304
  Serious: Yes (Hospitalization)
  Sender: FDA-Public Use
  Company Number: US-JNJFOC-20151001967

PATIENT
  Age: 44 Year
  Sex: Female

DRUGS (39)
  1. LEXAPRO [Suspect]
     Active Substance: ESCITALOPRAM OXALATE
     Indication: PRODUCT USED FOR UNKNOWN INDICATION
     Route: 048
     Dates: start: 20150622
  2. ALDACTONE [Concomitant]
     Active Substance: SPIRONOLACTONE
     Indication: BLOOD PRESSURE MEASUREMENT
     Route: 048
     Dates: start: 20150527
  3. HUMALOG MIX [Concomitant]
     Active Substance: INSULIN LISPRO
     Dosage: 40 UNITS IN THE MORNING AND 20 UNITS IN THE EVENING
     Route: 058
     Dates: start: 20140731
  4. SOMA [Concomitant]
     Active Substance: CARISOPRODOL
     Indication: MUSCLE SPASMS
     Dosage: AS NEEDED
     Route: 048
     Dates: start: 20150427
  5. PAXIL [Suspect]
     Active Substance: PAROXETINE HYDROCHLORIDE
     Indication: PRODUCT USED FOR UNKNOWN INDICATION
     Route: 048
     Dates: start: 20150720
  6. SYNTHROID [Concomitant]
     Active Substance: LEVOTHYROXINE SODIUM
     Route: 048
     Dates: start: 20150622
  7. ULTRAM [Concomitant]
     Active Substance: TRAMADOL HYDROCHLORIDE
     Dosage: AS NEEDED FOR 30 DAYS
     Route: 048
     Dates: start: 20150702
  8. INSULIN [Concomitant]
     Active Substance: INSULIN NOS
     Dosage: 250 (UNITS USPECIFIED)
     Route: 065
     Dates: start: 20150506
  9. ADVAIR DISKUS [Concomitant]
     Active Substance: FLUTICASONE PROPIONATE\SALMETEROL XINAFOATE
     Dosage: 250-50 MCG/DOSE INHALATION, 1 PUFF TWICE A DAY APPROXIMATELY 12 HOURS APART MORNING AND EVENING
     Route: 055
     Dates: start: 20150817
  10. HYZAAR [Concomitant]
     Active Substance: HYDROCHLOROTHIAZIDE\LOSARTAN POTASSIUM
     Dosage: 100-25 MG
     Route: 048
  11. IBUPROFEN. [Concomitant]
     Active Substance: IBUPROFEN
     Route: 048
     Dates: start: 20141015
  12. PROMETHAZINE DM [Concomitant]
     Active Substance: DEXTROMETHORPHAN HYDROBROMIDE\PROMETHAZINE HYDROCHLORIDE
     Indication: COUGH
     Dosage: 6.25-15 MG/5ML, ONE TEASPOONFUL 4 TIMES A DAY AS NEEDED FOR 5 DAYS
     Route: 048
     Dates: start: 20150629
  13. REGLAN [Concomitant]
     Active Substance: METOCLOPRAMIDE HYDROCHLORIDE
     Dosage: 30 MINUTES BEFORE MEALS AND AT BEDTIME FOR 30 DAYS
     Route: 048
     Dates: start: 20141015
  14. XARELTO [Suspect]
     Active Substance: RIVAROXABAN
     Indication: DEEP VEIN THROMBOSIS
     Route: 048
  15. GABAPENTIN. [Suspect]
     Active Substance: GABAPENTIN
     Indication: PAIN
     Route: 048
     Dates: start: 20150622
  16. DICYCLOMINE [Concomitant]
     Active Substance: DICYCLOMINE HYDROCHLORIDE
     Route: 048
     Dates: start: 20141110
  17. FERROUS SULFATE [Concomitant]
     Active Substance: FERROUS SULFATE\FERROUS SULFATE, DRIED
     Dosage: AFTER MEALS
     Route: 048
     Dates: start: 20150622
  18. IMITREX [Concomitant]
     Active Substance: SUMATRIPTAN\SUMATRIPTAN SUCCINATE
     Route: 048
  19. KLOR-CON [Concomitant]
     Active Substance: POTASSIUM CHLORIDE
     Route: 048
     Dates: start: 20150428
  20. ZOLPIDEM [Concomitant]
     Active Substance: ZOLPIDEM\ZOLPIDEM TARTRATE
     Dosage: AT BED TIME AS NEEDED FOR 90 DAYS
     Route: 048
     Dates: start: 20150915
  21. ESTRADIOL. [Suspect]
     Active Substance: ESTRADIOL
     Indication: PRODUCT USED FOR UNKNOWN INDICATION
     Route: 048
     Dates: start: 20150730
  22. BENZONATATE. [Concomitant]
     Active Substance: BENZONATATE
     Route: 048
     Dates: start: 20150916
  23. CLONIDINE HCL [Concomitant]
     Active Substance: CLONIDINE HYDROCHLORIDE
     Route: 048
     Dates: start: 20150206
  24. ELOCON [Concomitant]
     Active Substance: MOMETASONE FUROATE
     Dosage: A THIN LAYER TO BE APPLIED TOPICALLY TO AFFECTED AREA
     Route: 061
     Dates: start: 20150730
  25. HYDROXYZINE HCL [Concomitant]
     Active Substance: HYDROXYZINE HYDROCHLORIDE
     Dosage: AS NEEDED
     Route: 048
     Dates: start: 20150602
  26. NEXIUM [Concomitant]
     Active Substance: ESOMEPRAZOLE MAGNESIUM
     Dosage: FOR 90 DAYS
     Route: 048
     Dates: start: 20150428
  27. PROAIR HFA [Concomitant]
     Active Substance: ALBUTEROL SULFATE
     Dosage: 2 PUFFS EVERY 4 HOURS AS NEEDED
     Route: 055
     Dates: start: 20150202
  28. SUMATRIPTAN. [Concomitant]
     Active Substance: SUMATRIPTAN
     Indication: MIGRAINE
     Route: 048
     Dates: start: 20150501
  29. FOLIC ACID. [Concomitant]
     Active Substance: FOLIC ACID
     Route: 065
  30. TOPROL XL [Concomitant]
     Active Substance: METOPROLOL SUCCINATE
     Route: 048
     Dates: start: 20150428
  31. XYZAL [Concomitant]
     Active Substance: LEVOCETIRIZINE DIHYDROCHLORIDE
     Dosage: EVERY EVENING
     Route: 048
     Dates: start: 20150730
  32. ALBUTEROL SULFATE. [Concomitant]
     Active Substance: ALBUTEROL SULFATE
     Dosage: 90 MCG, EVERY 4 HOURS AS NEEDED FOR 30 DAYS
     Route: 055
     Dates: start: 20150428
  33. APIDRA [Concomitant]
     Active Substance: INSULIN GLULISINE
     Dosage: 100 UNIT/ML
     Route: 058
     Dates: start: 20150316
  34. PRILOSEC [Concomitant]
     Active Substance: OMEPRAZOLE MAGNESIUM
     Route: 048
     Dates: start: 20150302
  35. REMERON [Concomitant]
     Active Substance: MIRTAZAPINE
     Dosage: AT BEDTIME
     Route: 048
     Dates: start: 20150113
  36. XARELTO [Suspect]
     Active Substance: RIVAROXABAN
     Indication: DEEP VEIN THROMBOSIS
     Route: 048
  37. LASIX [Suspect]
     Active Substance: FUROSEMIDE
     Indication: PRODUCT USED FOR UNKNOWN INDICATION
     Route: 048
     Dates: start: 20141015
  38. TRICOR [Suspect]
     Active Substance: FENOFIBRATE
     Indication: PRODUCT USED FOR UNKNOWN INDICATION
     Route: 048
     Dates: start: 20140828
  39. LIPITOR [Concomitant]
     Active Substance: ATORVASTATIN CALCIUM
     Dosage: AT BEDTIME
     Route: 048
     Dates: start: 20141015

REACTIONS (2)
  - Treatment noncompliance [Unknown]
  - Pulmonary embolism [Unknown]
